FAERS Safety Report 5388931-X (Version None)
Quarter: 2007Q3

REPORT INFORMATION
  Report Type: 
  Country: None (occurrence: None)
  Receive Date: 20070717
  Receipt Date: 20070706
  Transmission Date: 20080115
  Serious: Yes (Other)
  Sender: FDA-Public Use
  Company Number: PHBS2007JP10988

PATIENT
  Age: 77 Year
  Sex: Female

DRUGS (4)
  1. PARLODEL [Suspect]
     Indication: PARKINSON'S DISEASE
     Dosage: 3 TABLETS/DAY
     Route: 048
     Dates: start: 20050901, end: 20061010
  2. SYMMETREL [Suspect]
     Indication: PARKINSON'S DISEASE
     Dosage: 1 TABLET/DAY
     Route: 048
     Dates: start: 20020901
  3. TRIHEXYPHENIDYL HYDROCHLORIDE [Suspect]
     Indication: PARKINSON'S DISEASE
     Dosage: 1 TABLET/DAY
     Route: 048
     Dates: start: 20020901
  4. CABERGOLINE [Suspect]
     Indication: PARKINSON'S DISEASE
     Dosage: 1 TABLET/DAY
     Route: 048
     Dates: start: 20020901

REACTIONS (4)
  - DECREASED APPETITE [None]
  - HALLUCINATION, VISUAL [None]
  - POSTURE ABNORMAL [None]
  - TORTICOLLIS [None]
